FAERS Safety Report 14590773 (Version 2)
Quarter: 2018Q1

REPORT INFORMATION
  Report Type: Spontaneous
  Country: FI (occurrence: FI)
  Receive Date: 20180302
  Receipt Date: 20180326
  Transmission Date: 20180509
  Serious: Yes (Death)
  Sender: FDA-Public Use
  Company Number: FI-ASTRAZENECA-2018SE24713

PATIENT
  Age: 77 Year
  Sex: Female

DRUGS (21)
  1. OXYNORM [Concomitant]
     Active Substance: OXYCODONE HYDROCHLORIDE
     Route: 042
     Dates: start: 20170329
  2. PARACETAMOL [Concomitant]
     Active Substance: ACETAMINOPHEN
     Dosage: 2000,MG,DAILY
  3. SOMAC [Concomitant]
     Active Substance: PANTOPRAZOLE SODIUM
     Dosage: 40,MG,DAILY
     Route: 048
     Dates: start: 20170207
  4. PRAMIPEXOLE. [Concomitant]
     Active Substance: PRAMIPEXOLE
     Dosage: 0.18,MG,DAILY
     Route: 048
     Dates: start: 20170223
  5. BETOLVEX [Concomitant]
     Active Substance: CYANOCOBALAMIN
     Dosage: 1,MG,DAILY
     Route: 048
     Dates: start: 20170223
  6. FLIXOTIDE DISKUS [Concomitant]
     Active Substance: FLUTICASONE PROPIONATE
     Dosage: 500,UG,DAILY
     Route: 055
     Dates: start: 20170306
  7. VAGIFEM [Concomitant]
     Active Substance: ESTRADIOL
     Dosage: 20,UG,WEEKLY
     Route: 067
     Dates: start: 20160708
  8. KETIPINOR [Suspect]
     Active Substance: QUETIAPINE FUMARATE
     Indication: PAIN
     Dosage: 25 MG, DAILY, NON AZ PRODUCT
     Route: 048
     Dates: start: 20170303, end: 20170406
  9. QUETIAPINE. [Suspect]
     Active Substance: QUETIAPINE
     Indication: PAIN
     Dosage: 25 MG, DAILY, NON AZ PRODUCT
     Route: 048
     Dates: start: 20170303, end: 20170406
  10. ATARAX [Concomitant]
     Active Substance: HYDROXYZINE HYDROCHLORIDE
     Dosage: 50,MG,DAILY
     Route: 048
     Dates: start: 20170330
  11. AMLODIPIN [Concomitant]
     Active Substance: AMLODIPINE BESYLATE
     Dosage: 5,MG,DAILY
     Route: 048
     Dates: start: 20170303
  12. ROSUVASTATIN. [Concomitant]
     Active Substance: ROSUVASTATIN
     Dosage: 10,MG,DAILY
     Route: 048
     Dates: start: 20170303
  13. CYMBALTA [Suspect]
     Active Substance: DULOXETINE HYDROCHLORIDE
     Indication: PAIN
     Route: 048
     Dates: start: 20160101, end: 20170406
  14. BISOPROLOL [Concomitant]
     Active Substance: BISOPROLOL
     Route: 048
     Dates: start: 20170309
  15. SERENASE [Concomitant]
     Active Substance: HALOPERIDOL
     Dosage: 2.5,MG,DAILY
     Dates: start: 20170329
  16. LOSARTAN. [Concomitant]
     Active Substance: LOSARTAN
     Dosage: 50,MG,DAILY
     Route: 048
     Dates: start: 20150918
  17. ZINACEF [Concomitant]
     Active Substance: CEFUROXIME SODIUM
     Dosage: 4.5,G,DAILY
     Dates: start: 20170330
  18. VENTOLINE DISKUS [Concomitant]
     Active Substance: ALBUTEROL SULFATE
     Route: 055
     Dates: start: 20161122
  19. OXYCODONE HYDROCHLORIDE. [Concomitant]
     Active Substance: OXYCODONE HYDROCHLORIDE
     Dosage: 2,DF,DAILY
     Route: 048
     Dates: start: 20170331
  20. IMIGRAN RADIS [Concomitant]
     Dates: start: 20160511
  21. SIRDALUD [Concomitant]
     Active Substance: TIZANIDINE

REACTIONS (39)
  - Death [Fatal]
  - Haematocrit decreased [Fatal]
  - Papule [Fatal]
  - Blood creatinine increased [Fatal]
  - Drug ineffective [Fatal]
  - Acne [Fatal]
  - Dyspnoea [Fatal]
  - Haemoglobin decreased [Fatal]
  - Fall [Fatal]
  - Serotonin syndrome [Fatal]
  - Malignant neoplasm progression [Fatal]
  - Pain [Fatal]
  - Dysstasia [Fatal]
  - Blood potassium decreased [Fatal]
  - Respiratory syncytial virus infection [Fatal]
  - Emotional distress [Fatal]
  - Nightmare [Fatal]
  - Red blood cell count decreased [Fatal]
  - Blood pressure increased [Fatal]
  - Delusion [Fatal]
  - Blood pressure decreased [Fatal]
  - Limb injury [Fatal]
  - Neoplasm malignant [Fatal]
  - Depressed level of consciousness [Fatal]
  - Glomerular filtration rate decreased [Fatal]
  - Fatigue [Fatal]
  - Vision blurred [Fatal]
  - General physical health deterioration [Fatal]
  - Visual impairment [Fatal]
  - Discoloured vomit [Fatal]
  - Loss of control of legs [Fatal]
  - Muscle spasms [Fatal]
  - C-reactive protein increased [Fatal]
  - Dizziness [Fatal]
  - Asthenia [Fatal]
  - Rash [Fatal]
  - Feeling abnormal [Fatal]
  - Hallucination, visual [Fatal]
  - Blood sodium decreased [Fatal]

NARRATIVE: CASE EVENT DATE: 20170101
